FAERS Safety Report 6165447-4 (Version None)
Quarter: 2009Q2

REPORT INFORMATION
  Report Type: 
  Country: None (occurrence: None)
  Receive Date: 20090423
  Receipt Date: 20090408
  Transmission Date: 20091009
  Serious: Yes (Death, Other)
  Sender: FDA-Public Use
  Company Number: PHBS2006JP06244

PATIENT
  Age: 72 Year
  Sex: Male

DRUGS (6)
  1. CYCLOSPORINE [Suspect]
     Indication: INTERSTITIAL LUNG DISEASE
     Route: 065
  2. STEROIDS NOS [Concomitant]
     Dosage: PULSE THERAPY
  3. ANTIBIOTICS [Concomitant]
  4. FLUCONAZOLE [Concomitant]
  5. POLYGAM S/D [Concomitant]
  6. GANCICLOVIR [Concomitant]

REACTIONS (13)
  - ABSCESS [None]
  - AORTIC THROMBOSIS [None]
  - ARTERIAL THROMBOSIS [None]
  - BONE MARROW FAILURE [None]
  - CYTOMEGALOVIRUS INFECTION [None]
  - PLATELET COUNT DECREASED [None]
  - PLEURAL EFFUSION [None]
  - PULMONARY INFARCTION [None]
  - PULMONARY NECROSIS [None]
  - RED BLOOD CELL COUNT DECREASED [None]
  - RESPIRATORY FAILURE [None]
  - STAPHYLOCOCCAL INFECTION [None]
  - ZYGOMYCOSIS [None]
